FAERS Safety Report 16906655 (Version 1)
Quarter: 2019Q4

REPORT INFORMATION
  Report Type: Report from Study
  Country: US (occurrence: US)
  Receive Date: 20191011
  Receipt Date: 20191011
  Transmission Date: 20200122
  Serious: Yes (Other)
  Sender: FDA-Public Use
  Company Number: US-ACADIA PHARMACEUTICALS INC.-ACA-2019-014286

PATIENT
  Age: 81 Year
  Sex: Male

DRUGS (1)
  1. NUPLAZID [Suspect]
     Active Substance: PIMAVANSERIN TARTRATE
     Indication: PARKINSON^S DISEASE
     Dosage: 10 MG, QD
     Route: 048
     Dates: start: 201907, end: 2019

REACTIONS (5)
  - Sleep disorder [Unknown]
  - Underdose [Unknown]
  - Delusion [Unknown]
  - Agitation [Unknown]
  - Ocular discomfort [Unknown]

NARRATIVE: CASE EVENT DATE: 201907
